FAERS Safety Report 7033091-2 (Version None)
Quarter: 2010Q4

REPORT INFORMATION
  Report Type: 
  Country: None (occurrence: None)
  Receive Date: 20101004
  Receipt Date: 20100701
  Transmission Date: 20110411
  Serious: Yes (Other)
  Sender: FDA-Public Use
  Company Number: 2010EU0003215

PATIENT
  Age: 31 Year
  Sex: Female

DRUGS (3)
  1. TACROLIMUS [Suspect]
     Indication: PROPHYLAXIS AGAINST TRANSPLANT REJECTION
  2. AZATHIOPRINE [Concomitant]
  3. PREDNISOLONE [Concomitant]

REACTIONS (13)
  - CAESAREAN SECTION [None]
  - DRUG EXPOSURE DURING PREGNANCY [None]
  - EPISTAXIS [None]
  - GESTATIONAL HYPERTENSION [None]
  - HAEMOLYTIC ANAEMIA [None]
  - INTRA-UTERINE DEATH [None]
  - KIDNEY TRANSPLANT REJECTION [None]
  - PRE-ECLAMPSIA [None]
  - PREGNANCY [None]
  - PREMATURE LABOUR [None]
  - PROTEINURIA [None]
  - STILLBIRTH [None]
  - THROMBOTIC THROMBOCYTOPENIC PURPURA [None]
